FAERS Safety Report 6182330-9 (Version None)
Quarter: 2009Q2

REPORT INFORMATION
  Report Type: 
  Country: None (occurrence: None)
  Receive Date: 20090505
  Receipt Date: 20090423
  Transmission Date: 20091009
  Serious: Yes (Other)
  Sender: FDA-Public Use
  Company Number: 2009AP001664

PATIENT
  Age: 10 Year

DRUGS (1)
  1. OMEPRAZOLE [Suspect]
     Dosage: 20 MG; PO, 20 MG; CAP; PO
     Route: 048
     Dates: start: 20090120, end: 20090126

REACTIONS (4)
  - DRUG INEFFECTIVE [None]
  - DYSPEPSIA [None]
  - REGURGITATION [None]
  - SALIVA DISCOLOURATION [None]
